FAERS Safety Report 5273356-8 (Version None)
Quarter: 2007Q1

REPORT INFORMATION
  Report Type: 
  Country: None (occurrence: None)
  Receive Date: 20070319
  Receipt Date: 20070302
  Transmission Date: 20070707
  Serious: Yes (Death)
  Sender: FDA-Public Use
  Company Number: 238241

PATIENT
  Age: 55 Year
  Sex: Female
  Weight: 79 kg

DRUGS (5)
  1. AVASTIN [Suspect]
     Dates: start: 20061113
  2. CAMPTOSAR [Suspect]
  3. COUMADIN [Suspect]
     Dosage: 1 MG, ORAL
     Route: 048
     Dates: start: 20070108
  4. FLUOROURACIL [Suspect]
  5. ZOFRAN [Suspect]
     Dosage: INTRAVENOUS
     Route: 042
     Dates: start: 20070122

REACTIONS (1)
  - HAEMORRHAGE [None]
